FAERS Safety Report 19745652 (Version 1)
Quarter: 2021Q3

REPORT INFORMATION
  Report Type: Spontaneous
  Country: VN (occurrence: VN)
  Receive Date: 20210825
  Receipt Date: 20210825
  Transmission Date: 20211014
  Serious: Yes (Other)
  Sender: FDA-Public Use
  Company Number: VN-ROCHE-2897591

PATIENT
  Age: 28 Year

DRUGS (3)
  1. LOVENOX [Concomitant]
     Active Substance: ENOXAPARIN SODIUM
  2. ACTEMRA [Suspect]
     Active Substance: TOCILIZUMAB
     Indication: COVID-19
     Route: 065
  3. DEXAMETHASONE. [Concomitant]
     Active Substance: DEXAMETHASONE

REACTIONS (6)
  - Alanine aminotransferase increased [Recovering/Resolving]
  - Fibrin D dimer increased [Unknown]
  - Aspartate aminotransferase increased [Recovering/Resolving]
  - Diffuse alveolar damage [Unknown]
  - Pulmonary fibrosis [Unknown]
  - Off label use [Unknown]
